FAERS Safety Report 9645704 (Version 3)
Quarter: 2014Q1

REPORT INFORMATION
  Report Type: Spontaneous
  Country: NO (occurrence: NO)
  Receive Date: 20131025
  Receipt Date: 20140210
  Transmission Date: 20141002
  Serious: Yes (Hospitalization)
  Sender: FDA-Public Use
  Company Number: NO-TEVA-440316USA

PATIENT
  Age: 66 Year
  Sex: Male

DRUGS (1)
  1. LEVACT [Suspect]
     Indication: CHRONIC LYMPHOCYTIC LEUKAEMIA
     Dosage: 80 PERCENT OF 100MG/M2
     Route: 042
     Dates: start: 20131008, end: 20131009

REACTIONS (5)
  - Lymphadenopathy [Unknown]
  - Feeling cold [Unknown]
  - Lymph node pain [Unknown]
  - Pyrexia [Unknown]
  - General physical health deterioration [Unknown]
